FAERS Safety Report 5043205-1 (Version None)
Quarter: 2006Q2

REPORT INFORMATION
  Report Type: 
  Country: None (occurrence: None)
  Receive Date: 20060629
  Receipt Date: 20030813
  Transmission Date: 20061013
  Serious: Yes (Hospitalization)
  Sender: FDA-Public Use
  Company Number: 226723

PATIENT
  Age: 63 Year
  Sex: Female
  Weight: 75 kg

DRUGS (17)
  1. MABTHERA (RITUXIMAB) CONC FOR SOLUTION FOR INFUSION [Suspect]
     Indication: NON-HODGKIN'S LYMPHOMA
     Dosage: 675 MG, Q3W, INTRAVENOUS
     Route: 042
     Dates: start: 20030804
  2. INTERFERON ALPHA 2A (INTERFERON ALFA-2A) [Suspect]
     Indication: NON-HODGKIN'S LYMPHOMA
     Dosage: SEE IMAGE
     Route: 058
     Dates: start: 20030804
  3. INTERFERON ALPHA 2A (INTERFERON ALFA-2A) [Suspect]
     Indication: NON-HODGKIN'S LYMPHOMA
     Dosage: SEE IMAGE
     Route: 058
     Dates: start: 20030813
  4. CYCLOPHOSPHAMIDE [Suspect]
     Indication: NON-HODGKIN'S LYMPHOMA
     Dosage: 1350 MG
     Dates: start: 20030804
  5. DOXORUBICIN HCL [Suspect]
     Indication: NON-HODGKIN'S LYMPHOMA
     Dosage: 90 MG
     Dates: start: 20030804
  6. VINCRISTINE [Suspect]
     Indication: NON-HODGKIN'S LYMPHOMA
     Dosage: 2 MG
     Dates: start: 20030804
  7. PREDNISONE TAB [Suspect]
     Indication: NON-HODGKIN'S LYMPHOMA
     Dosage: 180 MG
     Dates: start: 20030804
  8. MORPHINE [Suspect]
     Dosage: 20 MG
     Dates: start: 20030729
  9. BUPRENORPHINE (BUPRENORPHINE HYDROCHLORIDE) [Suspect]
     Dosage: 0.2 MG, PRN
     Dates: start: 20030811
  10. DUPHALAC [Concomitant]
  11. ALLOPURINOL [Concomitant]
  12. BENZYDAMINE (BENZYDAMINE HYDROCHLORIDE) [Concomitant]
  13. OXAZEPAM [Concomitant]
  14. ACETAMINOPHEN [Concomitant]
  15. METOCLOPRAMIDE (METOCLOPRAMIDE HYDROCHLORIDE) [Concomitant]
  16. NYSTATIN [Concomitant]
  17. DIAZEPAM [Concomitant]

REACTIONS (7)
  - BLOOD CREATININE INCREASED [None]
  - BLOOD URIC ACID ABNORMAL [None]
  - CONFUSIONAL STATE [None]
  - DEHYDRATION [None]
  - FALL [None]
  - NAUSEA [None]
  - VOMITING [None]
